FAERS Safety Report 25721776 (Version 1)
Quarter: 2025Q3

REPORT INFORMATION
  Report Type: Spontaneous
  Country: US (occurrence: US)
  Receive Date: 20250825
  Receipt Date: 20250825
  Transmission Date: 20251020
  Serious: Yes (Other)
  Sender: MYLAN
  Company Number: US-MYLANLABS-2025M1070686

PATIENT
  Age: 92 Year
  Sex: Male

DRUGS (20)
  1. ZOLOFT [Interacting]
     Active Substance: SERTRALINE HYDROCHLORIDE
     Indication: Depression
  2. ZOLOFT [Interacting]
     Active Substance: SERTRALINE HYDROCHLORIDE
     Route: 065
  3. ZOLOFT [Interacting]
     Active Substance: SERTRALINE HYDROCHLORIDE
     Route: 065
  4. ZOLOFT [Interacting]
     Active Substance: SERTRALINE HYDROCHLORIDE
  5. BIAXIN [Interacting]
     Active Substance: CLARITHROMYCIN
     Indication: Pneumonia
     Dosage: 500 MILLIGRAM, BID (TWO TIMES A DAY)
  6. BIAXIN [Interacting]
     Active Substance: CLARITHROMYCIN
     Dosage: 500 MILLIGRAM, BID (TWO TIMES A DAY)
     Route: 065
  7. BIAXIN [Interacting]
     Active Substance: CLARITHROMYCIN
     Dosage: 500 MILLIGRAM, BID (TWO TIMES A DAY)
     Route: 065
  8. BIAXIN [Interacting]
     Active Substance: CLARITHROMYCIN
     Dosage: 500 MILLIGRAM, BID (TWO TIMES A DAY)
  9. REXULTI [Suspect]
     Active Substance: BREXPIPRAZOLE
     Indication: Agitation
  10. REXULTI [Suspect]
     Active Substance: BREXPIPRAZOLE
     Indication: Dementia Alzheimer^s type
  11. REXULTI [Suspect]
     Active Substance: BREXPIPRAZOLE
     Route: 048
  12. REXULTI [Suspect]
     Active Substance: BREXPIPRAZOLE
     Route: 048
  13. REXULTI [Suspect]
     Active Substance: BREXPIPRAZOLE
  14. REXULTI [Suspect]
     Active Substance: BREXPIPRAZOLE
  15. REXULTI [Suspect]
     Active Substance: BREXPIPRAZOLE
     Route: 048
  16. REXULTI [Suspect]
     Active Substance: BREXPIPRAZOLE
     Route: 048
  17. REXULTI [Suspect]
     Active Substance: BREXPIPRAZOLE
  18. REXULTI [Suspect]
     Active Substance: BREXPIPRAZOLE
     Route: 048
  19. REXULTI [Suspect]
     Active Substance: BREXPIPRAZOLE
  20. REXULTI [Suspect]
     Active Substance: BREXPIPRAZOLE
     Route: 048

REACTIONS (3)
  - Sedation [Unknown]
  - Pneumonia [Unknown]
  - Labelled drug-drug interaction issue [Unknown]
